FAERS Safety Report 15559845 (Version 3)
Quarter: 2018Q4

REPORT INFORMATION
  Report Type: Report from Study
  Country: CO (occurrence: CO)
  Receive Date: 20181029
  Receipt Date: 20181110
  Transmission Date: 20190205
  Serious: Yes (Hospitalization)
  Sender: FDA-Public Use
  Company Number: PHHY2018CO139850

PATIENT
  Sex: Female

DRUGS (2)
  1. SANDOSTATIN LAR DEPOT [Suspect]
     Active Substance: OCTREOTIDE ACETATE
     Indication: ACROMEGALY
     Dosage: 30 MG, QMO
     Route: 030
     Dates: start: 201809
  2. LOSARTAN. [Suspect]
     Active Substance: LOSARTAN
     Indication: HYPERTENSION
     Dosage: 1 EVERY 12 (UNSPECIFIED UNIT)
     Route: 048

REACTIONS (7)
  - Hyperhidrosis [Recovered/Resolved]
  - Thyroid disorder [Unknown]
  - Finger deformity [Recovered/Resolved]
  - Eye irritation [Unknown]
  - Headache [Not Recovered/Not Resolved]
  - Stress [Unknown]
  - Blood viscosity decreased [Recovered/Resolved]
